FAERS Safety Report 22726071 (Version 2)
Quarter: 2024Q2

REPORT INFORMATION
  Report Type: Other
  Country: NP (occurrence: NP)
  Receive Date: 20230720
  Receipt Date: 20240422
  Transmission Date: 20240717
  Serious: Yes (Other)
  Sender: FDA-Public Use
  Company Number: NP-Appco Pharma LLC-2143919

PATIENT
  Age: 25 Year
  Sex: Female

DRUGS (2)
  1. DOXYCYCLINE [Suspect]
     Active Substance: DOXYCYCLINE
     Indication: Product used for unknown indication
     Route: 065
  2. BETAMETHASONE [Suspect]
     Active Substance: BETAMETHASONE\BETAMETHASONE DIPROPIONATE
     Route: 065

REACTIONS (3)
  - Premature delivery [Unknown]
  - Product use in unapproved indication [Unknown]
  - Maternal exposure during pregnancy [Unknown]
